FAERS Safety Report 9643366 (Version 1)
Quarter: 2013Q4

REPORT INFORMATION
  Report Type: Spontaneous
  Country: US (occurrence: US)
  Receive Date: 20131024
  Receipt Date: 20131024
  Transmission Date: 20140711
  Serious: Yes (Life-Threatening)
  Sender: FDA-Public Use
  Company Number: CHPA2013US015963

PATIENT
  Sex: 0

DRUGS (4)
  1. EXCEDRIN UNKNOWN [Suspect]
     Indication: TENSION HEADACHE
     Dosage: UNK, UNK
  2. EXCEDRIN UNKNOWN [Suspect]
     Indication: CLUSTER HEADACHE
  3. EXCEDRIN UNKNOWN [Suspect]
     Indication: MIGRAINE
  4. TOPAMAX [Concomitant]
     Dosage: UNK, UNK

REACTIONS (2)
  - Feeling abnormal [Unknown]
  - Drug ineffective [Unknown]
